FAERS Safety Report 5862662-1 (Version None)
Quarter: 2008Q3

REPORT INFORMATION
  Report Type: 
  Country: None (occurrence: None)
  Receive Date: 20080827
  Receipt Date: 20080827
  Transmission Date: 20090109
  Serious: Yes (Other)
  Sender: FDA-Public Use
  Company Number: None

PATIENT
  Age: 44 Year
  Sex: Male
  Weight: 85.7298 kg

DRUGS (1)
  1. SIMVASTATIN [Suspect]
     Indication: BLOOD CHOLESTEROL INCREASED
     Dosage: ONE DAILY PO
     Route: 048
     Dates: start: 20080815, end: 20080818

REACTIONS (5)
  - ASTHENIA [None]
  - GAIT DISTURBANCE [None]
  - HYPERAESTHESIA [None]
  - INFLUENZA LIKE ILLNESS [None]
  - MYALGIA [None]
